FAERS Safety Report 20688698 (Version 1)
Quarter: 2022Q2

REPORT INFORMATION
  Report Type: Spontaneous
  Country: RO (occurrence: None)
  Receive Date: 20220408
  Receipt Date: 20220408
  Transmission Date: 20220721
  Serious: Yes (Other)
  Sender: FDA-Public Use
  Company Number: RO-ROCHE-2063123

PATIENT
  Age: 73 Year
  Sex: Male

DRUGS (6)
  1. OBINUTUZUMAB [Suspect]
     Active Substance: OBINUTUZUMAB
     Indication: Chronic lymphocytic leukaemia
     Dosage: CYCLE 1 DAY 1?CYCLE 1, SECOND ADMINISTRATION OF 900 MG IS NOT GIVEN.
     Route: 042
     Dates: start: 20180125
  2. OBINUTUZUMAB [Suspect]
     Active Substance: OBINUTUZUMAB
     Dosage: CYCLE 2 DAY 1
     Route: 042
     Dates: start: 20180207
  3. OBINUTUZUMAB [Suspect]
     Active Substance: OBINUTUZUMAB
     Dosage: CYCLE 2 DAY 2
     Route: 042
     Dates: start: 20180208
  4. DEXAMETHASONE [Concomitant]
     Active Substance: DEXAMETHASONE
     Indication: Premedication
     Dosage: ONE HOUR BEFORE OBINUTUZUMAB INFUSION
  5. ACETAMINOPHEN [Concomitant]
     Active Substance: ACETAMINOPHEN
     Indication: Premedication
     Dosage: 2 PILLS 1/2 HOURS BEFORE OBINUTUZUMAB INFUSION
  6. AERIUS [Concomitant]
     Indication: Premedication
     Dosage: 1 PILL 1/2 HOURS BEFORE OBINUTUZUMAB INFUSION

REACTIONS (6)
  - Neutropenia [Unknown]
  - Infusion related reaction [Recovered/Resolved]
  - Transaminases increased [Unknown]
  - Hypotension [Recovered/Resolved]
  - Hepatic cytolysis [Unknown]
  - Dyspnoea [Recovered/Resolved]

NARRATIVE: CASE EVENT DATE: 20180126
